FAERS Safety Report 13656434 (Version 1)
Quarter: 2017Q2

REPORT INFORMATION
  Report Type: Spontaneous
  Country: FR (occurrence: FR)
  Receive Date: 20170615
  Receipt Date: 20170615
  Transmission Date: 20170830
  Serious: Yes (Other)
  Sender: FDA-Public Use
  Company Number: FR-PFIZER INC-2017141753

PATIENT
  Age: 32 Year
  Sex: Female

DRUGS (5)
  1. MITOXANTRONE [Concomitant]
     Active Substance: MITOXANTRONE HYDROCHLORIDE
     Indication: LYMPHANGIOSIS CARCINOMATOSA
     Dosage: 12 MG/M2, CYCLIC (EVERY THREE WEEKS)
  2. CYCLOPHOSPHAMIDE. [Concomitant]
     Active Substance: CYCLOPHOSPHAMIDE
     Indication: ADENOCARCINOMA
     Dosage: UNK
  3. EPIRUBICIN [Concomitant]
     Active Substance: EPIRUBICIN
     Indication: ADENOCARCINOMA
     Dosage: UNK
  4. VINORELBINE TARTRATE. [Suspect]
     Active Substance: VINORELBINE TARTRATE
     Indication: LYMPHANGIOSIS CARCINOMATOSA
     Dosage: 25 MG/M2, CYCLIC (EVERY THREE WEEKS)
  5. FLUOROURACIL. [Concomitant]
     Active Substance: FLUOROURACIL
     Indication: ADENOCARCINOMA
     Dosage: UNK

REACTIONS (1)
  - Bezoar [Recovered/Resolved]
